FAERS Safety Report 5165275-2 (Version None)
Quarter: 2006Q4

REPORT INFORMATION
  Report Type: 
  Country: None (occurrence: None)
  Receive Date: 20061124
  Receipt Date: 20061113
  Transmission Date: 20070319
  Serious: Yes (Hospitalization, Other)
  Sender: FDA-Public Use
  Company Number: 2006142092

PATIENT
  Age: 79 Year
  Sex: Female

DRUGS (12)
  1. GABAPENTIN [Suspect]
     Indication: PAIN
     Dosage: 100 MG (100 MG, 1 IN 1 D), ORAL
     Route: 048
     Dates: start: 20061003
  2. AMITRIPTYLINE HCL [Concomitant]
  3. BENDROFLUAZIDE (BENDROFLUMETHIAZIDE) [Concomitant]
  4. CORSODYL (CHLORHEXIDINE GLUCONATE) [Concomitant]
  5. IBUPROFEN [Concomitant]
  6. LACTULOSE [Concomitant]
  7. OMEPRAZOLE [Concomitant]
  8. OXYCONTIN [Concomitant]
  9. OXYCODONE HCL [Concomitant]
  10. ACETAMINOPHEN [Concomitant]
  11. SENNA (SENNA) [Concomitant]
  12. GLANDOSANE (CALCIUM CHLORIDE DIHYDRATE, CARMELLOSE SODIUM, MAGNESIUM C [Concomitant]

REACTIONS (3)
  - NEUTROPENIC SEPSIS [None]
  - PLATELET COUNT DECREASED [None]
  - WHITE BLOOD CELL COUNT DECREASED [None]
